FAERS Safety Report 6539812-7 (Version None)
Quarter: 2010Q1

REPORT INFORMATION
  Report Type: 
  Country: None (occurrence: None)
  Receive Date: 20100115
  Receipt Date: 20100106
  Transmission Date: 20100710
  Serious: Yes (Life-Threatening, Hospitalization)
  Sender: FDA-Public Use
  Company Number: FR-PFIZER INC-2009264805

PATIENT
  Age: 61 Year
  Sex: Male

DRUGS (10)
  1. IRINOTECAN HCL [Suspect]
     Indication: GASTRIC CANCER
     Dosage: 340 MG, CYCLIC
     Route: 042
     Dates: start: 20080513, end: 20080513
  2. FLUOROURACIL [Suspect]
     Indication: GASTRIC CANCER
     Dosage: 756 MG, CYCLIC
     Route: 040
     Dates: start: 20080513, end: 20080515
  3. FLUOROURACIL [Suspect]
     Dosage: 4536 MG, CYCLIC
     Route: 041
     Dates: start: 20080513, end: 20080515
  4. FOLINIC ACID [Suspect]
     Indication: GASTRIC CANCER
     Dosage: 756 MG, CYCLIC
     Route: 042
     Dates: start: 20080513, end: 20080513
  5. SOLU-MEDROL [Concomitant]
     Indication: VOMITING
     Dosage: 100 MG, UNK
     Route: 042
     Dates: start: 20080401
  6. SOLU-MEDROL [Concomitant]
     Indication: ASTHENIA
  7. STILNOX [Concomitant]
     Indication: INSOMNIA
     Dosage: 1 DF
     Route: 048
  8. LANTUS [Concomitant]
     Indication: DIABETES MELLITUS
     Dosage: 10 IU, UNK
     Route: 058
  9. INIPOMP [Concomitant]
     Indication: PROPHYLAXIS AGAINST GASTROINTESTINAL ULCER
     Dosage: 1 DF
     Route: 048
  10. LOVENOX [Concomitant]
     Indication: PHLEBITIS
     Dosage: UNK
     Route: 058
     Dates: start: 20080410

REACTIONS (2)
  - DIARRHOEA [None]
  - GENERAL PHYSICAL HEALTH DETERIORATION [None]
